FAERS Safety Report 21072353 (Version 1)
Quarter: 2022Q3

REPORT INFORMATION
  Report Type: Spontaneous
  Country: US (occurrence: US)
  Receive Date: 20220712
  Receipt Date: 20220712
  Transmission Date: 20221027
  Serious: No
  Sender: FDA-Public Use
  Company Number: US-BoehringerIngelheim-2022-BI-181226

PATIENT

DRUGS (3)
  1. MOBIC [Suspect]
     Active Substance: MELOXICAM
     Indication: Analgesic intervention supportive therapy
  2. TYLENOL [Concomitant]
     Active Substance: ACETAMINOPHEN
     Indication: Toothache
  3. IBUPROFEN [Concomitant]
     Active Substance: IBUPROFEN
     Indication: Toothache

REACTIONS (1)
  - Renal disorder [Unknown]
